FAERS Safety Report 10083871 (Version 3)
Quarter: 2015Q1

REPORT INFORMATION
  Report Type: Spontaneous
  Country: US (occurrence: US)
  Receive Date: 20140417
  Receipt Date: 20150106
  Transmission Date: 20150720
  Serious: Yes (Other)
  Sender: FDA-Public Use
  Company Number: US-BAYER-2014-057237

PATIENT
  Age: 28 Year
  Sex: Female
  Weight: 81.63 kg

DRUGS (4)
  1. CLONAZEPAM. [Concomitant]
     Active Substance: CLONAZEPAM
     Dosage: 0.5 MG, TAKE 1 THREE TIMES DAILY AS NEEDED
     Route: 048
  2. PROZAC [Concomitant]
     Active Substance: FLUOXETINE HYDROCHLORIDE
     Indication: DEPRESSION
     Dosage: 40 MG, UNK
     Dates: start: 2004
  3. PHENTERMINE [Concomitant]
     Active Substance: PHENTERMINE
     Dosage: 37.5 MG, TAKE 1 EVERY MORNING
     Route: 048
     Dates: start: 20061115
  4. YAZ [Suspect]
     Active Substance: DROSPIRENONE\ETHINYL ESTRADIOL
     Dosage: UNK
     Dates: start: 200701

REACTIONS (8)
  - Cerebrovascular accident [None]
  - Deep vein thrombosis [None]
  - Thrombosis [None]
  - Emotional distress [None]
  - Injury [None]
  - Fear of disease [None]
  - Pulmonary embolism [Recovered/Resolved]
  - Pain [None]

NARRATIVE: CASE EVENT DATE: 20070202
